FAERS Safety Report 17478477 (Version 1)
Quarter: 2020Q1

REPORT INFORMATION
  Report Type: Spontaneous
  Country: CH (occurrence: CH)
  Receive Date: 20200228
  Receipt Date: 20200228
  Transmission Date: 20200409
  Serious: Yes (Other)
  Sender: FDA-Public Use
  Company Number: CH-PFIZER INC-2020083870

PATIENT
  Age: 15 Year
  Sex: Female
  Weight: 57 kg

DRUGS (45)
  1. NERVIFENE [Suspect]
     Active Substance: CHLORAL HYDRATE
     Indication: SEDATION
     Dosage: 700 MG, 6X/DAY
     Route: 041
     Dates: start: 20191205, end: 20191228
  2. PARACETAMOL [Concomitant]
     Active Substance: ACETAMINOPHEN
     Dosage: 500 MG TO 3 G/DAY FROM 12DEC2019 TO 04JAN2020 THEN 500 TO 1000 MG / DAY SINCE 17JAN2020
     Route: 048
     Dates: start: 20200117
  3. CLONIDINE. [Concomitant]
     Active Substance: CLONIDINE
     Dosage: 150 MG ON 13DEC2019 THEN FROM 16 TO 18DEC2019 THEN FROM 9JAN TO 20JAN2020
     Route: 048
     Dates: start: 20200109, end: 20200120
  4. VANCOMYCIN [Concomitant]
     Active Substance: VANCOMYCIN
     Indication: PNEUMONIA
     Dosage: 1000 MG, 2X
     Route: 041
     Dates: start: 20191219, end: 20191219
  5. PRIVIGEN [Concomitant]
     Active Substance: HUMAN IMMUNOGLOBULIN G
     Dosage: 35 TO 40 G/D FROM 6 TO 08DEC2019 THEN FROM 08 TO 10JAN2020
     Route: 041
     Dates: start: 20191208, end: 20200110
  6. RITUXIMAB. [Concomitant]
     Active Substance: RITUXIMAB
     Dosage: 1X ON 22DEC2019 AND 1X ON 08JAN2020
     Route: 041
     Dates: start: 20200108, end: 20200108
  7. TAZOBAC [Suspect]
     Active Substance: PIPERACILLIN SODIUM\TAZOBACTAM SODIUM
     Indication: ESCHERICHIA URINARY TRACT INFECTION
     Dosage: 4 G, 3X/DAY
     Route: 041
     Dates: start: 20190111, end: 20190111
  8. MORPHINE [Concomitant]
     Active Substance: MORPHINE
     Indication: PAIN
     Dosage: 3 MG, 6X/DAY
     Route: 041
     Dates: start: 20191217
  9. CLONIDINE. [Concomitant]
     Active Substance: CLONIDINE
     Indication: SEDATION
     Dosage: 150 MG ON 13DEC2019 THEN FROM 16 TO 18DEC2019 THEN FROM 9JAN TO 20JAN2020
     Route: 048
     Dates: start: 20191213, end: 20191213
  10. DEXMEDETOMIDINE. [Concomitant]
     Active Substance: DEXMEDETOMIDINE
     Indication: SEDATION
     Dosage: DIFFERENT DOSES
     Route: 041
     Dates: start: 20191217, end: 20200109
  11. LEVOMEPROMAZINE [Concomitant]
     Active Substance: LEVOMEPROMAZINE
     Dosage: 200 MG/D ON 09DEC AND FROM 19 TO 25DEC2019
     Route: 048
     Dates: start: 20191219, end: 20191225
  12. DOPAMINE [Concomitant]
     Active Substance: DOPAMINE HYDROCHLORIDE
     Dosage: DIFFERENT DOSES
     Route: 048
     Dates: start: 20191218, end: 20191223
  13. IBUPROFENE [Concomitant]
     Active Substance: IBUPROFEN
     Dosage: 400 MG, DAILY
     Route: 048
     Dates: start: 20191228, end: 20200103
  14. CO-AMOXI [Suspect]
     Active Substance: AMOXICILLIN\CLAVULANATE POTASSIUM
     Indication: PNEUMONIA
     Dosage: 2200 MG, SINGLE
     Route: 041
     Dates: start: 20191218, end: 20191218
  15. MELATONINE [Concomitant]
     Active Substance: MELATONIN
     Indication: INSOMNIA
     Dosage: 5 MG, DAILY
     Route: 048
     Dates: start: 20191209, end: 20191215
  16. CIPROFLOXACINE [CIPROFLOXACIN] [Concomitant]
     Active Substance: CIPROFLOXACIN
     Indication: URINARY TRACT INFECTION
     Dosage: 500 MG, 2X/DAY
     Route: 048
     Dates: start: 20200114, end: 20200119
  17. ACICLOVIR [Concomitant]
     Active Substance: ACYCLOVIR
     Indication: INFECTION PROPHYLAXIS
     Dosage: 500 MG, 3X/DAY
     Route: 041
     Dates: start: 20200103, end: 20200110
  18. DOMPERIDONE [Concomitant]
     Active Substance: DOMPERIDONE
     Dosage: 10 MG, 3X/DAY
     Route: 048
     Dates: start: 20191218, end: 20200106
  19. FUROSEMIDE. [Concomitant]
     Active Substance: FUROSEMIDE
     Dosage: DIFFERENT DOSES
     Route: 048
     Dates: start: 20191219, end: 20191221
  20. ENOXAPARIN [Concomitant]
     Active Substance: ENOXAPARIN
     Dosage: UNK
     Dates: start: 20200211, end: 20200211
  21. COTRIMOXAZOLE [Suspect]
     Active Substance: SULFAMETHOXAZOLE\TRIMETHOPRIM
     Indication: INFECTION PROPHYLAXIS
     Dosage: UNK, DAILY
     Route: 041
     Dates: start: 20191225, end: 20191225
  22. CLOMETIAZOLE [Concomitant]
     Active Substance: CLOMETHIAZOLE
     Indication: SEDATION
     Dosage: 500 MG, 3X/DAY
     Route: 048
     Dates: start: 20191229
  23. MIDAZOLAM HYDROCHLORIDE. [Concomitant]
     Active Substance: MIDAZOLAM HYDROCHLORIDE
     Dosage: UNK
     Dates: end: 20200110
  24. CEFTRIAXONE. [Concomitant]
     Active Substance: CEFTRIAXONE
     Indication: URINARY TRACT INFECTION
     Dosage: 1 G, DAILY
     Route: 041
     Dates: start: 20191231, end: 20200106
  25. SPIRONOLACTONE. [Concomitant]
     Active Substance: SPIRONOLACTONE
     Dosage: UNK UNK, DAILY
     Route: 048
     Dates: start: 20191231, end: 20200105
  26. MELATONINE [Concomitant]
     Active Substance: MELATONIN
     Dosage: 5 MG, DAILY
     Route: 048
     Dates: start: 20200114
  27. PRIVIGEN [Concomitant]
     Active Substance: HUMAN IMMUNOGLOBULIN G
     Indication: ENCEPHALITIS
     Dosage: 35 TO 40 G/D FROM 6 TO 08DEC2019 THEN FROM 08 TO 10JAN2020
     Route: 041
     Dates: start: 20191206, end: 20191208
  28. ENOXAPARIN [Concomitant]
     Active Substance: ENOXAPARIN
     Dosage: UNK
     Route: 048
     Dates: start: 20200115, end: 20200118
  29. COTRIMOXAZOLE [Suspect]
     Active Substance: SULFAMETHOXAZOLE\TRIMETHOPRIM
     Dosage: 140 MG, 2X/DAY
     Route: 041
     Dates: start: 20200125
  30. CHLORPROTHIXENUM [Concomitant]
     Indication: SEDATION
     Dosage: 15 MG, DAILY
     Route: 048
     Dates: start: 20191207, end: 20191209
  31. METHYLPREDNISOLONE. [Concomitant]
     Active Substance: METHYLPREDNISOLONE
     Indication: ENCEPHALITIS AUTOIMMUNE
     Dosage: 1000 MG, DAILY
     Route: 041
     Dates: start: 20191206, end: 20191208
  32. RITUXIMAB. [Concomitant]
     Active Substance: RITUXIMAB
     Indication: ENCEPHALITIS AUTOIMMUNE
     Dosage: 1X ON 22DEC2019 AND 1X ON 08JAN2020
     Route: 041
     Dates: start: 20191222, end: 20191222
  33. BIPERIDENE [Concomitant]
     Active Substance: BIPERIDEN
     Indication: EXTRAPYRAMIDAL DISORDER
     Dosage: 2.5 MG ON 25DEC2019 AND 5 MG ON 27DEC2019
     Route: 041
     Dates: start: 20191225, end: 20191225
  34. IBUPROFENE [Concomitant]
     Active Substance: IBUPROFEN
     Dosage: UNK
     Dates: start: 20200211, end: 20200211
  35. HEPARINE [HEPARIN] [Concomitant]
     Active Substance: HEPARIN SODIUM
     Indication: THROMBOSIS PROPHYLAXIS
     Dosage: DIFFERENT DOSES
     Route: 041
     Dates: start: 20191217, end: 20200114
  36. TAZOBAC [Suspect]
     Active Substance: PIPERACILLIN SODIUM\TAZOBACTAM SODIUM
     Indication: PNEUMONIA
     Dosage: 4 G, 3X/DAY
     Route: 041
     Dates: start: 20191219, end: 20191223
  37. MIDAZOLAM HYDROCHLORIDE. [Concomitant]
     Active Substance: MIDAZOLAM HYDROCHLORIDE
     Indication: SEDATION
     Dosage: DIFFERENT DOSES
     Route: 041
     Dates: start: 20191217, end: 20200107
  38. CLONAZEPAM. [Concomitant]
     Active Substance: CLONAZEPAM
     Indication: SEDATION
     Dosage: DIFFERENT DOSES
     Route: 048
     Dates: start: 20191207, end: 20191218
  39. BIPERIDENE [Concomitant]
     Active Substance: BIPERIDEN
     Dosage: 2.5 MG ON 25DEC2019 AND 5 MG ON 27DEC2019
     Route: 041
     Dates: start: 20191227, end: 20191227
  40. CLORAZEPATE [Concomitant]
     Active Substance: CLORAZEPATE DIPOTASSIUM
     Indication: SEDATION
     Dosage: UNK, DAILY
     Route: 048
     Dates: start: 20200103
  41. PARACETAMOL [Concomitant]
     Active Substance: ACETAMINOPHEN
     Indication: PAIN
     Dosage: 500 MG TO 3 G/DAY FROM 12DEC2019 TO 04JAN2020 THEN 500 TO 1000 MG / DAY SINCE 17JAN2020
     Route: 048
     Dates: start: 20191212, end: 20200104
  42. CLONIDINE. [Concomitant]
     Active Substance: CLONIDINE
     Dosage: 150 MG ON 13DEC2019 THEN FROM 16 TO 18DEC2019 THEN FROM 9JAN TO 20JAN2020
     Route: 048
     Dates: start: 20191216, end: 20191218
  43. LEVOMEPROMAZINE [Concomitant]
     Active Substance: LEVOMEPROMAZINE
     Indication: SEDATION
     Dosage: 200 MG/D ON 09DEC AND FROM 19 TO 25DEC2019
     Route: 048
     Dates: start: 20191209, end: 20191209
  44. TORASEMIDE [Concomitant]
     Active Substance: TORSEMIDE
     Dosage: 2.5 MG, DAILY
     Route: 048
     Dates: start: 20200102, end: 20200104
  45. ESOMEPRAZOLE. [Concomitant]
     Active Substance: ESOMEPRAZOLE MAGNESIUM
     Dosage: 40 MG, DAILY
     Route: 048
     Dates: start: 20191206, end: 20191208

REACTIONS (6)
  - Drug reaction with eosinophilia and systemic symptoms [Recovered/Resolved]
  - Hepatitis [Unknown]
  - Liver function test abnormal [Recovered/Resolved]
  - Rash maculo-papular [Recovered/Resolved]
  - Hepatocellular injury [Unknown]
  - Hepatomegaly [Unknown]

NARRATIVE: CASE EVENT DATE: 20191219
